FAERS Safety Report 23429375 (Version 2)
Quarter: 2024Q1

REPORT INFORMATION
  Report Type: Spontaneous
  Country: IT (occurrence: IT)
  Receive Date: 20240122
  Receipt Date: 20240212
  Transmission Date: 20240410
  Serious: Yes (Hospitalization)
  Sender: FDA-Public Use
  Company Number: IT-BIOGEN-2024BI01245109

PATIENT
  Age: 56 Year
  Sex: Female

DRUGS (2)
  1. TYSABRI [Suspect]
     Active Substance: NATALIZUMAB
     Indication: Multiple sclerosis
     Dosage: DISCONTINUED BETWEEN THE END OF 2020 AND 2021
     Route: 050
     Dates: start: 201701
  2. TYSABRI [Suspect]
     Active Substance: NATALIZUMAB
     Dosage: IN EXTENDED INTERVAL DOSING
     Route: 050
     Dates: end: 20231109

REACTIONS (4)
  - Progressive multifocal leukoencephalopathy [Unknown]
  - Prescribed underdose [Unknown]
  - Pneumonia [Unknown]
  - H1N1 influenza [Unknown]
